FAERS Safety Report 12564215 (Version 2)
Quarter: 2016Q3

REPORT INFORMATION
  Report Type: Other
  Country: NL (occurrence: NL)
  Receive Date: 20160718
  Receipt Date: 20160804
  Transmission Date: 20161109
  Serious: Yes (Life-Threatening, Hospitalization, Congenital Anomaly, Other)
  Sender: FDA-Public Use
  Company Number: NL-APOTEX-2016AP009867

PATIENT
  Sex: Male
  Weight: 3.9 kg

DRUGS (1)
  1. PAROXETINE. [Suspect]
     Active Substance: PAROXETINE
     Indication: DEPRESSION
     Dosage: 20 MG, QD
     Route: 064
     Dates: start: 2008, end: 2008

REACTIONS (3)
  - Foetal exposure during pregnancy [Recovered/Resolved]
  - Coma [Recovered/Resolved with Sequelae]
  - Psychomotor retardation [Recovered/Resolved with Sequelae]

NARRATIVE: CASE EVENT DATE: 2008
